FAERS Safety Report 7807202-2 (Version None)
Quarter: 2011Q4

REPORT INFORMATION
  Report Type: 
  Country: None (occurrence: None)
  Receive Date: 20111011
  Receipt Date: 20111007
  Transmission Date: 20120403
  Serious: Yes (Life-Threatening, Hospitalization)
  Sender: FDA-Public Use
  Company Number: PHHY2011JP86383

PATIENT
  Age: 74 Year
  Sex: Female

DRUGS (6)
  1. METOPROLOL TARTRATE [Suspect]
     Indication: ATRIAL FIBRILLATION
     Dosage: UNK
     Route: 048
  2. PROBUCOL [Suspect]
     Dosage: UNK
     Route: 048
  3. DISOPYRAMIDE [Suspect]
     Indication: ATRIAL FIBRILLATION
     Dosage: UNK
     Route: 048
  4. DISOPYRAMIDE [Suspect]
     Indication: DYSLIPIDAEMIA
  5. CLARITHROMYCIN [Suspect]
     Dosage: UNK
     Dates: start: 20110101
  6. METILDIGOXIN [Suspect]
     Route: 048

REACTIONS (4)
  - SYNCOPE [None]
  - NASOPHARYNGITIS [None]
  - TORSADE DE POINTES [None]
  - LONG QT SYNDROME [None]
